FAERS Safety Report 16714455 (Version 1)
Quarter: 2019Q3

REPORT INFORMATION
  Report Type: Spontaneous
  Country: NL (occurrence: NL)
  Receive Date: 20190819
  Receipt Date: 20190819
  Transmission Date: 20191004
  Serious: Yes (Hospitalization)
  Sender: FDA-Public Use
  Company Number: NL-BAXTER-2019BAX015711

PATIENT
  Age: 66 Year
  Sex: Female
  Weight: 96.6 kg

DRUGS (7)
  1. THIAMINE. [Concomitant]
     Active Substance: THIAMINE
     Indication: PRODUCT USED FOR UNKNOWN INDICATION
     Dosage: 25 MILLIGRAMS, 4 X PER DAY ?THIAMINE TABLET 25 MG (ORAL)
     Route: 065
  2. METRONIDAZOL 5 MG/ML IN VIAFLO, OPLOSSING VOOR INTRAVEINEUZE INFUSIE [Suspect]
     Active Substance: METRONIDAZOLE
     Indication: ANTIBIOTIC PROPHYLAXIS
     Dosage: METRONIDAZOLE 500 MG/100 ML (IV), 3 X PER DAY, 5 DAYS?METRONIDAZOLE INFUSION FLUID
     Route: 065
     Dates: start: 20190625, end: 20190627
  3. ALLOPURINOL. [Concomitant]
     Active Substance: ALLOPURINOL
     Indication: PRODUCT USED FOR UNKNOWN INDICATION
     Dosage: 100 MILLIGRAMS, 2 X PER DAY?ALLOPURINOL 100 MG TABLET (ORAL)
     Route: 065
  4. CEFTRIAXON [Suspect]
     Active Substance: CEFTRIAXONE
     Indication: ANTIBIOTIC PROPHYLAXIS
     Dosage: CEFTRIAXONE 2000 MG/50 ML (IV), 2000 MG 1 X PER DAY
     Route: 065
     Dates: start: 20190625, end: 20190627
  5. ESOMEPRAZOLE. [Concomitant]
     Active Substance: ESOMEPRAZOLE MAGNESIUM
     Indication: PRODUCT USED FOR UNKNOWN INDICATION
     Dosage: 40 MG, 2 X PER DAY?ESOMEPRAZOLE 40 MG/5 ML (IV)
     Route: 065
  6. THIAMINE. [Concomitant]
     Active Substance: THIAMINE
     Indication: PRODUCT USED FOR UNKNOWN INDICATION
     Dosage: 100 MILLIGRAMS PER DAY?THIAMINE INJECTION 100 MG/ML AMP 1 ML (IV),
     Route: 065
  7. SUPRADYN COMPLEX ENERGY [Concomitant]
     Indication: PRODUCT USED FOR UNKNOWN INDICATION
     Dosage: 1 X TABLET 1 X DAILY?EFFERVESCENT TABLET (ORAL)
     Route: 065

REACTIONS (2)
  - Generalised oedema [Recovering/Resolving]
  - Acute generalised exanthematous pustulosis [Recovering/Resolving]

NARRATIVE: CASE EVENT DATE: 20190705
